FAERS Safety Report 16308191 (Version 1)
Quarter: 2019Q2

REPORT INFORMATION
  Report Type: Spontaneous
  Country: US (occurrence: US)
  Receive Date: 20190514
  Receipt Date: 20190514
  Transmission Date: 20190711
  Serious: No
  Sender: FDA-Public Use
  Company Number: US-BIOGEN-2019BI00736352

PATIENT
  Sex: Female

DRUGS (2)
  1. TYSABRI [Suspect]
     Active Substance: NATALIZUMAB
     Indication: MULTIPLE SCLEROSIS
     Route: 042
     Dates: start: 20140311, end: 20160429
  2. TYSABRI [Suspect]
     Active Substance: NATALIZUMAB
     Dosage: INFUSED OVER 1 HOUR
     Route: 048

REACTIONS (10)
  - Balance disorder [Unknown]
  - Memory impairment [Unknown]
  - Pain in extremity [Unknown]
  - Paraesthesia [Unknown]
  - Headache [Not Recovered/Not Resolved]
  - Confusional state [Unknown]
  - Dysarthria [Not Recovered/Not Resolved]
  - Fall [Recovered/Resolved]
  - Cognitive disorder [Unknown]
  - Irritability [Unknown]
